FAERS Safety Report 6381986-5 (Version None)
Quarter: 2009Q3

REPORT INFORMATION
  Report Type: 
  Country: None (occurrence: None)
  Receive Date: 20090930
  Receipt Date: 20090921
  Transmission Date: 20100115
  Serious: Yes (Other)
  Sender: FDA-Public Use
  Company Number: FR-ROCHE-658481

PATIENT
  Age: 50 Year
  Sex: Male

DRUGS (3)
  1. RIBAVIRIN [Suspect]
     Route: 065
  2. INTERFERON ALFA-2B [Suspect]
     Route: 065
  3. INSULIN [Suspect]
     Route: 065

REACTIONS (2)
  - RETINOPATHY [None]
  - SCOTOMA [None]
